FAERS Safety Report 22609217 (Version 7)
Quarter: 2025Q3

REPORT INFORMATION
  Report Type: Spontaneous
  Country: CA (occurrence: CA)
  Receive Date: 20230616
  Receipt Date: 20250707
  Transmission Date: 20251021
  Serious: No
  Sender: PFIZER
  Company Number: CA-PFIZER INC-202300210254

PATIENT
  Age: 60 Year
  Sex: Female

DRUGS (5)
  1. ABRILADA [Suspect]
     Active Substance: ADALIMUMAB-AFZB
     Indication: Rheumatoid arthritis
     Route: 058
     Dates: start: 20230604
  2. ABRILADA [Suspect]
     Active Substance: ADALIMUMAB-AFZB
  3. METHOTREXATE [Concomitant]
     Active Substance: METHOTREXATE
     Dosage: 25 MG, WEEKLY
     Dates: start: 200408
  4. TYLENOL ARTHRITIS PAIN [Concomitant]
     Active Substance: ACETAMINOPHEN
  5. NAPROXEN [Concomitant]
     Active Substance: NAPROXEN

REACTIONS (7)
  - Injection site pain [Unknown]
  - Injection site bruising [Unknown]
  - Condition aggravated [Recovering/Resolving]
  - Dyspnoea [Unknown]
  - Asthenia [Unknown]
  - Night sweats [Unknown]
  - Fatigue [Unknown]

NARRATIVE: CASE EVENT DATE: 20230601
